FAERS Safety Report 16095455 (Version 1)
Quarter: 2019Q1

REPORT INFORMATION
  Report Type: Spontaneous
  Country: US (occurrence: US)
  Receive Date: 20190320
  Receipt Date: 20190320
  Transmission Date: 20190418
  Serious: No
  Sender: FDA-Public Use
  Company Number: US-TOLMAR, INC.-TOLG20192187

PATIENT
  Age: 70 Year
  Sex: Female

DRUGS (2)
  1. CLOBETASOL PROPIONATE. [Suspect]
     Active Substance: CLOBETASOL PROPIONATE
     Indication: ECZEMA
     Dosage: UNKNOWN; ALTERNATING WITH CALCIPOTRIENE
     Route: 061
  2. CALCIPOTRIENE. [Suspect]
     Active Substance: CALCIPOTRIENE
     Indication: ECZEMA
     Dosage: UNKNOWN; ALTERNATING WITH CLOBETASOL
     Route: 061

REACTIONS (3)
  - Pruritus [Unknown]
  - Pain of skin [Unknown]
  - Skin injury [Unknown]
